FAERS Safety Report 9926882 (Version 2)
Quarter: 2014Q1

REPORT INFORMATION
  Report Type: Spontaneous
  Country: US (occurrence: US)
  Receive Date: 20140226
  Receipt Date: 20140226
  Transmission Date: 20141002
  Serious: No
  Sender: FDA-Public Use
  Company Number: US-AMGEN-USASP2013076008

PATIENT
  Age: 30 Year
  Sex: Female

DRUGS (3)
  1. ENBREL [Suspect]
     Indication: ANKYLOSING SPONDYLITIS
     Dosage: 50 MG, QWK
     Route: 065
     Dates: start: 20130117
  2. TRINESSA [Concomitant]
     Indication: CONTRACEPTION
     Dosage: UNK
     Route: 048
  3. PROZAC [Concomitant]
     Indication: DEPRESSION
     Dosage: 20 MG, QD
     Route: 048

REACTIONS (4)
  - Polyuria [Recovered/Resolved]
  - Dysuria [Recovered/Resolved]
  - Abdominal pain [Unknown]
  - Dysmenorrhoea [Recovered/Resolved]
